FAERS Safety Report 23808470 (Version 1)
Quarter: 2024Q2

REPORT INFORMATION
  Report Type: Spontaneous
  Country: US (occurrence: US)
  Receive Date: 20240502
  Receipt Date: 20240502
  Transmission Date: 20240716
  Serious: No
  Sender: FDA-Public Use
  Company Number: US-PFIZER INC-PV202400056800

PATIENT
  Age: 37 Year
  Sex: Female

DRUGS (2)
  1. NURTEC ODT [Interacting]
     Active Substance: RIMEGEPANT SULFATE
     Dosage: UNK
  2. RECORLEV [Interacting]
     Active Substance: LEVOKETOCONAZOLE
     Dosage: UNK

REACTIONS (1)
  - Drug interaction [Unknown]
